FAERS Safety Report 7679341-0 (Version None)
Quarter: 2011Q3

REPORT INFORMATION
  Report Type: 
  Country: None (occurrence: None)
  Receive Date: 20110809
  Receipt Date: 20110726
  Transmission Date: 20111222
  Serious: Yes (Death, Other)
  Sender: FDA-Public Use
  Company Number: 2011MA006516

PATIENT
  Age: 43 Year
  Sex: Male

DRUGS (5)
  1. HEROIN [Concomitant]
  2. DIAZEPAM [Suspect]
     Dosage: 10 MG, QD, PO
     Route: 048
  3. METHADONE HCL [Suspect]
  4. BENZODIAZEPINE [Concomitant]
  5. CLOZARIL [Suspect]
     Indication: SCHIZOPHRENIA
     Dosage: PO
     Route: 048
     Dates: start: 20080204

REACTIONS (4)
  - MULTIPLE DRUG OVERDOSE [None]
  - CIRCULATORY COLLAPSE [None]
  - ALCOHOL USE [None]
  - SUDDEN DEATH [None]
